FAERS Safety Report 12336623 (Version 1)
Quarter: 2016Q2

REPORT INFORMATION
  Report Type: Spontaneous
  Country: IT (occurrence: IT)
  Receive Date: 20160505
  Receipt Date: 20160505
  Transmission Date: 20160815
  Serious: Yes (Other)
  Sender: FDA-Public Use
  Company Number: IT-NOVOPROD-489655

PATIENT
  Age: 25 Year
  Sex: Female
  Weight: 65 kg

DRUGS (5)
  1. LEVEMIR [Suspect]
     Active Substance: INSULIN DETEMIR
     Dosage: 24 IU, QD (AT BEDTIME)
     Route: 065
  2. NOVORAPID [Suspect]
     Active Substance: INSULIN ASPART
     Dosage: 67 IU, QD (BEFORE MEALS)
     Route: 065
  3. ALPHA-METHYLDOPA [Concomitant]
     Active Substance: METHYLDOPA
     Indication: BLOOD PRESSURE INCREASED
     Dosage: UNK
     Route: 065
  4. LEVEMIR [Suspect]
     Active Substance: INSULIN DETEMIR
     Indication: PRODUCT USED FOR UNKNOWN INDICATION
     Dosage: 10 IU, QD (AT BEDTIME)
     Route: 065
  5. NOVORAPID [Suspect]
     Active Substance: INSULIN ASPART
     Indication: PRODUCT USED FOR UNKNOWN INDICATION
     Dosage: 34 IU, QD (BEFORE MEALS)
     Route: 065

REACTIONS (3)
  - Premature delivery [Unknown]
  - Exposure during pregnancy [Unknown]
  - Polyhydramnios [Unknown]
